FAERS Safety Report 6263605-1 (Version None)
Quarter: 2009Q3

REPORT INFORMATION
  Report Type: 
  Country: None (occurrence: None)
  Receive Date: 20090710
  Receipt Date: 20090624
  Transmission Date: 20100115
  Serious: No
  Sender: FDA-Public Use
  Company Number: A0787396A

PATIENT
  Age: 41 Year
  Sex: Female

DRUGS (2)
  1. TYKERB [Suspect]
     Indication: BREAST CANCER STAGE IV
     Dosage: 1250MG PER DAY
     Route: 048
     Dates: start: 20090520
  2. XELODA [Concomitant]

REACTIONS (6)
  - DIARRHOEA [None]
  - DYSPNOEA [None]
  - LETHARGY [None]
  - NAUSEA [None]
  - PALPITATIONS [None]
  - RASH [None]
